FAERS Safety Report 8509284-1 (Version None)
Quarter: 2012Q3

REPORT INFORMATION
  Report Type: 
  Country: None (occurrence: None)
  Receive Date: 20120713
  Receipt Date: 20120629
  Transmission Date: 20120928
  Serious: Yes (Hospitalization)
  Sender: FDA-Public Use
  Company Number: PT-ROCHE-1083403

PATIENT
  Age: 57 Year
  Sex: Male

DRUGS (2)
  1. TRAZODONE HYDROCHLORIDE [Suspect]
     Indication: DEPRESSION
  2. DIAZEPAM [Suspect]
     Indication: DEPRESSION

REACTIONS (1)
  - ACUTE HEPATIC FAILURE [None]
